FAERS Safety Report 5485107-2 (Version None)
Quarter: 2007Q4

REPORT INFORMATION
  Report Type: 
  Country: None (occurrence: None)
  Receive Date: 20071015
  Receipt Date: 20071005
  Transmission Date: 20080405
  Serious: Yes (Hospitalization, Other)
  Sender: FDA-Public Use
  Company Number: JP-JNJFOC-20070801817

PATIENT
  Age: 59 Year
  Sex: Male

DRUGS (1)
  1. HALOPERIDOL DECANOATE [Suspect]
     Indication: DRUG USE FOR UNKNOWN INDICATION
     Route: 030

REACTIONS (4)
  - BRONCHIAL SECRETION RETENTION [None]
  - HYPOXIC ENCEPHALOPATHY [None]
  - NEUROLEPTIC MALIGNANT SYNDROME [None]
  - RESPIRATORY ARREST [None]
